FAERS Safety Report 25587190 (Version 1)
Quarter: 2025Q3

REPORT INFORMATION
  Report Type: Spontaneous
  Country: EU (occurrence: EU)
  Receive Date: 20250721
  Receipt Date: 20250721
  Transmission Date: 20251020
  Serious: Yes (Other)
  Sender: MERCK SHARP & DOHME LLC
  Company Number: None

PATIENT
  Age: 24 Year
  Sex: Male
  Weight: 77 kg

DRUGS (11)
  1. KEYTRUDA [Suspect]
     Active Substance: PEMBROLIZUMAB
     Indication: Hodgkin^s disease
     Dosage: ONE 200MG INJECTION EVERY THREE WEEKS.
     Route: 042
     Dates: start: 20250414, end: 20250414
  2. OXYCODONE HYDROCHLORIDE [Concomitant]
     Active Substance: OXYCODONE HYDROCHLORIDE
     Indication: Pain
     Route: 048
  3. VINORELBINE (DITARTRATE) [Concomitant]
     Indication: Hodgkin^s disease
     Route: 042
  4. TEGRETOL 400 mg, scored tablet [Concomitant]
     Indication: Epilepsy
     Dosage: TEGRETOL LP 400 MG CP: 2 TABLETS IN THE MORNING, 2 TABLETS IN THE EVENING, EVERY DAY
     Route: 048
  5. ZONEGRAN 100 mg, capsule [Concomitant]
     Indication: Epilepsy
     Dosage: ZONEGRAN 100MG CAPSULE: 6 CAPSULES IN THE EVENING, EVERY DAY
     Route: 048
  6. TRAMADOL HYDROCHLORIDE [Concomitant]
     Active Substance: TRAMADOL HYDROCHLORIDE
     Indication: Pain
     Dosage: TRAMADOL 50 MG EVERY 4 HOURS
     Route: 048
  7. CENOBAMATE [Concomitant]
     Active Substance: CENOBAMATE
     Indication: Epilepsy
     Dosage: 1 TABLET EVERY EVENING
  8. METOCLOPRAMIDE HYDROCHLORIDE [Concomitant]
     Active Substance: METOCLOPRAMIDE HYDROCHLORIDE
     Indication: Prophylaxis of nausea and vomiting
     Route: 048
  9. VALACYCLOVIR HYDROCHLORIDE [Concomitant]
     Active Substance: VALACYCLOVIR HYDROCHLORIDE
     Dosage: VALACICLOVIR 500 MG MORNING AND EVENING
     Route: 048
  10. GEMZAR [Concomitant]
     Active Substance: GEMCITABINE HYDROCHLORIDE
     Indication: Hodgkin^s disease
     Route: 042
  11. LIDOCAINE HYDROCHLORIDE [Concomitant]
     Active Substance: LIDOCAINE HYDROCHLORIDE
     Indication: Pain
     Route: 003

REACTIONS (1)
  - Meningitis aseptic [Recovering/Resolving]

NARRATIVE: CASE EVENT DATE: 20250415
